FAERS Safety Report 6839808-1 (Version None)
Quarter: 2010Q3

REPORT INFORMATION
  Report Type: 
  Country: None (occurrence: None)
  Receive Date: 20100714
  Receipt Date: 20100623
  Transmission Date: 20110219
  Serious: Yes (Death, Congenital Anomaly)
  Sender: FDA-Public Use
  Company Number: US-BAYER-201027043NA

PATIENT

DRUGS (1)
  1. MIRENA [Suspect]
     Indication: CONTRACEPTION
     Route: 064

REACTIONS (1)
  - NEURAL TUBE DEFECT [None]
